FAERS Safety Report 8529478 (Version 2)
Quarter: 2012Q4

REPORT INFORMATION
  Report Type: 
  Country: US (occurrence: US)
  Receive Date: 20120425
  Receipt Date: 20121120
  Transmission Date: 20130627
  Serious: Yes (Other)
  Sender: FDA-Public Use
  Company Number: US-PFIZER INC-K201100525

PATIENT
  Age: 57 Year
  Sex: Female
  Weight: 106 kg

DRUGS (9)
  1. AVINZA [Suspect]
     Dosage: UNK
  2. ERYTHROMYCIN [Suspect]
     Dosage: UNK
  3. FLUOROURACIL [Concomitant]
     Indication: HEAD AND NECK CANCER
     Dosage: UNK
  4. CISPLATIN [Concomitant]
     Indication: HEAD AND NECK CANCER
     Dosage: UNK
  5. LEVOTHYROXINE SODIUM [Concomitant]
     Indication: HYPOTHYROIDISM
     Dosage: 50 ug, UNK
  6. FLUOXETINE HYDROCHLORIDE [Concomitant]
     Indication: DEPRESSION
     Dosage: 20 mg, UNK
  7. POTASSIUM CHLORIDE [Concomitant]
     Dosage: UNK
  8. DIPHENHYDRAMINE HYDROCHLORIDE [Concomitant]
     Dosage: UNK
  9. CETUXIMAB [Concomitant]
     Indication: HEAD AND NECK CANCER
     Dosage: UNK

REACTIONS (1)
  - Drug hypersensitivity [Unknown]
